FAERS Safety Report 9787240 (Version 1)
Quarter: 2013Q4

REPORT INFORMATION
  Report Type: Spontaneous
  Country: GB (occurrence: GB)
  Receive Date: 20131229
  Receipt Date: 20131229
  Transmission Date: 20140711
  Serious: Yes (Disabling)
  Sender: FDA-Public Use
  Company Number: GB-ROCHE-1326778

PATIENT
  Age: 44 Year
  Sex: Male
  Weight: 80 kg

DRUGS (2)
  1. COPEGUS [Suspect]
     Indication: HEPATITIS C VIRUS TEST POSITIVE
     Route: 048
     Dates: start: 20130905, end: 20131213
  2. PEGASYS [Suspect]
     Indication: HEPATITIS C VIRUS TEST POSITIVE
     Route: 058
     Dates: start: 20130905, end: 20131213

REACTIONS (3)
  - Blood pressure abnormal [Unknown]
  - Hyperthyroidism [Unknown]
  - Heart rate increased [Unknown]
